FAERS Safety Report 4945810-7 (Version None)
Quarter: 2006Q1

REPORT INFORMATION
  Report Type: 
  Country: None (occurrence: None)
  Receive Date: 20060316
  Receipt Date: 20060228
  Transmission Date: 20060701
  Serious: Yes (Life-Threatening, Hospitalization)
  Sender: FDA-Public Use
  Company Number: 2006AP00958

PATIENT
  Age: 67 Year
  Sex: Female
  Weight: 45 kg

DRUGS (7)
  1. MEROPEN KIT [Suspect]
     Indication: SEPSIS
     Route: 041
     Dates: start: 20051224, end: 20051225
  2. FIRSTCIN [Suspect]
     Indication: SEPSIS
     Route: 041
     Dates: start: 20051212, end: 20051222
  3. HORMONE AGENT [Concomitant]
     Indication: ARTERIOSCLEROSIS OBLITERANS
     Route: 041
     Dates: start: 20051130, end: 20051206
  4. VANMYCIN [Concomitant]
     Indication: MYELITIS
     Route: 041
     Dates: start: 20051204, end: 20051224
  5. PLETAL [Concomitant]
     Indication: ARTERIOSCLEROSIS OBLITERANS
     Route: 048
     Dates: start: 20051204
  6. INSULIN [Concomitant]
     Indication: DIABETES MELLITUS
     Dosage: DOSE UNSPECIFIED
     Route: 058
     Dates: start: 20051204
  7. ERYTHROCYTE RICH TRANSFUSION [Concomitant]
     Dates: start: 20051214, end: 20051214

REACTIONS (1)
  - ANAPHYLACTIC SHOCK [None]
